FAERS Safety Report 4888219-7 (Version None)
Quarter: 2006Q1

REPORT INFORMATION
  Report Type: 
  Country: None (occurrence: None)
  Receive Date: 20060119
  Receipt Date: 20060110
  Transmission Date: 20060701
  Serious: Yes (Other)
  Sender: FDA-Public Use
  Company Number: 2006005400

PATIENT
  Age: 22 Year
  Sex: Female
  Weight: 49.8957 kg

DRUGS (1)
  1. UNISOM [Suspect]
     Dosage: 4 SLEEPGELS ONCE, ORAL
     Route: 048
     Dates: start: 20060105, end: 20060105

REACTIONS (2)
  - FALL [None]
  - HALLUCINATION [None]
